FAERS Safety Report 6891827-5 (Version None)
Quarter: 2010Q3

REPORT INFORMATION
  Report Type: 
  Country: None (occurrence: None)
  Receive Date: 20100731
  Receipt Date: 20080311
  Transmission Date: 20110219
  Serious: Yes (Other)
  Sender: FDA-Public Use
  Company Number: US-PFIZER INC-2007091053

PATIENT
  Sex: Male
  Weight: 74.09 kg

DRUGS (3)
  1. CAMPTOSAR [Suspect]
     Indication: PANCREATIC CARCINOMA
  2. LOMOTIL [Suspect]
  3. LOPERAMIDE HYDROCHLORIDE [Concomitant]

REACTIONS (4)
  - ABDOMINAL PAIN [None]
  - DIARRHOEA [None]
  - FLATULENCE [None]
  - WEIGHT DECREASED [None]
